FAERS Safety Report 23758780 (Version 1)
Quarter: 2024Q2

REPORT INFORMATION
  Report Type: Spontaneous
  Country: US (occurrence: None)
  Receive Date: 20240418
  Receipt Date: 20240418
  Transmission Date: 20240715
  Serious: No
  Sender: FDA-Public Use
  Company Number: US-ROCHE-3410402

PATIENT
  Sex: Female

DRUGS (3)
  1. AVASTIN [Suspect]
     Active Substance: BEVACIZUMAB
     Indication: Retinal disorder
     Route: 050
  2. AVASTIN [Suspect]
     Active Substance: BEVACIZUMAB
     Indication: Cataract
  3. AVASTIN [Suspect]
     Active Substance: BEVACIZUMAB
     Indication: Malignant melanoma

REACTIONS (8)
  - Brain fog [Unknown]
  - Gait disturbance [Unknown]
  - Abdominal discomfort [Unknown]
  - Off label use [Unknown]
  - Encephalopathy [Unknown]
  - Embolism [Unknown]
  - Proteinuria [Unknown]
  - Balance disorder [Unknown]
